FAERS Safety Report 16849963 (Version 1)
Quarter: 2019Q3

REPORT INFORMATION
  Report Type: Spontaneous
  Country: GB (occurrence: GB)
  Receive Date: 20190925
  Receipt Date: 20190925
  Transmission Date: 20191005
  Serious: Yes (Hospitalization)
  Sender: FDA-Public Use
  Company Number: GB-AKORN PHARMACEUTICALS-2019AKN01997

PATIENT
  Age: 51 Year
  Sex: Female

DRUGS (1)
  1. TRIAMCINOLONE ACETONIDE. [Suspect]
     Active Substance: TRIAMCINOLONE ACETONIDE
     Indication: CARPAL TUNNEL SYNDROME
     Dosage: 40 MG (EACH WRIST; 10 TREATMENTS IN TOTAL, BY DEC-2012)
     Route: 065
     Dates: start: 2007

REACTIONS (1)
  - Tendon rupture [Recovering/Resolving]

NARRATIVE: CASE EVENT DATE: 2013
